FAERS Safety Report 24000532 (Version 1)
Quarter: 2024Q2

REPORT INFORMATION
  Report Type: Spontaneous
  Country: FR (occurrence: FR)
  Receive Date: 20240621
  Receipt Date: 20240621
  Transmission Date: 20240716
  Serious: No
  Sender: FDA-Public Use
  Company Number: FR-PHARMAMAR-2024PM000100

PATIENT

DRUGS (1)
  1. ZEPZELCA [Suspect]
     Active Substance: LURBINECTEDIN
     Indication: Product used for unknown indication
     Dosage: 3.2 MILLIGRAM, Q3W
     Dates: start: 20240202

REACTIONS (6)
  - Leukopenia [Unknown]
  - Hypoalbuminaemia [Unknown]
  - C-reactive protein increased [Unknown]
  - Asthenia [Recovered/Resolved]
  - Musculoskeletal pain [Recovered/Resolved]
  - Anaemia [Unknown]

NARRATIVE: CASE EVENT DATE: 20231222
